FAERS Safety Report 15762210 (Version 2)
Quarter: 2021Q3

REPORT INFORMATION
  Report Type: Report from Study
  Country: CA (occurrence: CA)
  Receive Date: 20181226
  Receipt Date: 20210722
  Transmission Date: 20211014
  Serious: Yes (Other)
  Sender: FDA-Public Use
  Company Number: CA-JNJFOC-20181223988

PATIENT
  Age: 51 Year
  Sex: Male
  Weight: 93.1 kg

DRUGS (1)
  1. REMICADE [Suspect]
     Active Substance: INFLIXIMAB
     Indication: CROHN^S DISEASE
     Route: 042
     Dates: start: 20180711

REACTIONS (1)
  - Bladder neoplasm [Recovered/Resolved]

NARRATIVE: CASE EVENT DATE: 2018
